FAERS Safety Report 15790810 (Version 6)
Quarter: 2020Q1

REPORT INFORMATION
  Report Type: Report from Study
  Country: US (occurrence: US)
  Receive Date: 20190104
  Receipt Date: 20200225
  Transmission Date: 20200409
  Serious: Yes (Life-Threatening, Hospitalization, Other)
  Sender: FDA-Public Use
  Company Number: US-ACTELION-A-NJ2018-171002

PATIENT
  Age: 53 Year
  Sex: Male
  Weight: 171.88 kg

DRUGS (18)
  1. VERAPAMIL [Concomitant]
     Active Substance: VERAPAMIL HYDROCHLORIDE
  2. SUCRALFATE. [Concomitant]
     Active Substance: SUCRALFATE
  3. IRON [Concomitant]
     Active Substance: IRON
  4. FLUTICASONE. [Concomitant]
     Active Substance: FLUTICASONE
  5. CONTOUR [Concomitant]
  6. MICROLET [Concomitant]
  7. RANITIDINE. [Concomitant]
     Active Substance: RANITIDINE
  8. ELIQUIS [Concomitant]
     Active Substance: APIXABAN
  9. LISINOPRIL. [Concomitant]
     Active Substance: LISINOPRIL
  10. GLYBURIDE W/METFORMIN [Concomitant]
     Active Substance: GLYBURIDE\METFORMIN
  11. WARFARIN [Concomitant]
     Active Substance: WARFARIN
  12. FUROSEMIDE. [Concomitant]
     Active Substance: FUROSEMIDE
  13. PANTOPRAZOLE [Concomitant]
     Active Substance: PANTOPRAZOLE
  14. FEROSOL [Concomitant]
     Active Substance: IRON
  15. SILDENAFIL. [Concomitant]
     Active Substance: SILDENAFIL
  16. OPSUMIT [Suspect]
     Active Substance: MACITENTAN
     Indication: PULMONARY ARTERIAL HYPERTENSION
     Dosage: 10 MG, QD
     Route: 048
     Dates: start: 20170628
  17. XARELTO [Suspect]
     Active Substance: RIVAROXABAN
     Indication: PRODUCT USED FOR UNKNOWN INDICATION
     Dosage: 20 MG, QD
     Route: 048
  18. HYDRALAZINE [Concomitant]
     Active Substance: HYDRALAZINE HYDROCHLORIDE

REACTIONS (11)
  - Anaemia [Unknown]
  - Dyspnoea [Not Recovered/Not Resolved]
  - Product dose omission [Recovered/Resolved]
  - Gait disturbance [Recovering/Resolving]
  - Haemoglobin decreased [Unknown]
  - Blood potassium increased [Unknown]
  - Chest discomfort [Recovering/Resolving]
  - Transfusion [Unknown]
  - Pulmonary haemorrhage [Recovered/Resolved]
  - Gastritis [Not Recovered/Not Resolved]
  - Pulmonary embolism [Recovered/Resolved]

NARRATIVE: CASE EVENT DATE: 20181220
